FAERS Safety Report 23138368 (Version 2)
Quarter: 2023Q4

REPORT INFORMATION
  Report Type: Spontaneous
  Country: JP (occurrence: JP)
  Receive Date: 20231102
  Receipt Date: 20231229
  Transmission Date: 20240109
  Serious: Yes (Hospitalization, Other)
  Sender: FDA-Public Use
  Company Number: JP-MSD-M2023-26137

PATIENT
  Age: 8 Decade
  Sex: Male

DRUGS (3)
  1. KEYTRUDA [Suspect]
     Active Substance: PEMBROLIZUMAB
     Indication: Renal cell carcinoma
     Dosage: 200 MILLIGRAM, Q3W
     Route: 041
     Dates: start: 202206, end: 202306
  2. LENVATINIB MESYLATE [Suspect]
     Active Substance: LENVATINIB MESYLATE
     Indication: Renal cell carcinoma
     Dosage: 14 MILLIGRAM, QD
     Route: 048
     Dates: start: 202206, end: 20230630
  3. LENVATINIB MESYLATE [Suspect]
     Active Substance: LENVATINIB MESYLATE
     Dosage: 8 MILLIGRAM
     Route: 048
     Dates: start: 20230701, end: 2023

REACTIONS (4)
  - Cholecystitis [Recovered/Resolved]
  - Immune-mediated hypophysitis [Recovered/Resolved]
  - Adrenal insufficiency [Recovered/Resolved]
  - Proteinuria [Recovering/Resolving]

NARRATIVE: CASE EVENT DATE: 20230101
